FAERS Safety Report 6434912-4 (Version None)
Quarter: 2009Q4

REPORT INFORMATION
  Report Type: 
  Country: None (occurrence: None)
  Receive Date: 20091110
  Receipt Date: 20091026
  Transmission Date: 20100525
  Serious: Yes (Hospitalization)
  Sender: FDA-Public Use
  Company Number: FR-GENENTECH-293536

PATIENT
  Sex: Male

DRUGS (5)
  1. RITUXIMAB [Suspect]
     Indication: B-CELL LYMPHOMA
     Dosage: 730 MG, UNK
     Route: 042
     Dates: start: 20061211
  2. DOXORUBICIN HCL [Suspect]
     Indication: B-CELL LYMPHOMA
     Dosage: 98 MG, UNK
     Route: 042
     Dates: start: 20061211
  3. CYCLOPHOSPHAMIDE [Suspect]
     Indication: B-CELL LYMPHOMA
     Dosage: 1500 MG, UNK
     Route: 042
     Dates: start: 20061211
  4. VINCRISTINE [Suspect]
     Indication: B-CELL LYMPHOMA
     Dosage: 2 MG, UNK
     Route: 042
     Dates: start: 20061211
  5. PREDNISOLONE [Suspect]
     Indication: B-CELL LYMPHOMA
     Dosage: 78 MG, UNK
     Route: 042
     Dates: start: 20061211

REACTIONS (1)
  - BASAL CELL CARCINOMA [None]
